FAERS Safety Report 14551103 (Version 1)
Quarter: 2018Q1

REPORT INFORMATION
  Report Type: Spontaneous
  Country: US (occurrence: US)
  Receive Date: 20180220
  Receipt Date: 20180220
  Transmission Date: 20180509
  Serious: No
  Sender: FDA-Public Use
  Company Number: US-TEVA-2017-US-831957

PATIENT
  Sex: Female

DRUGS (1)
  1. CLOBETASOL [Suspect]
     Active Substance: CLOBETASOL
     Indication: PSORIASIS
     Dates: start: 2016

REACTIONS (1)
  - Drug effect decreased [Unknown]

NARRATIVE: CASE EVENT DATE: 2016
